FAERS Safety Report 8961531 (Version 1)
Quarter: 2012Q4

REPORT INFORMATION
  Report Type: Report from Study
  Country: CH (occurrence: CH)
  Receive Date: 20121212
  Receipt Date: 20121212
  Transmission Date: 20130627
  Serious: Yes (Life-Threatening)
  Sender: FDA-Public Use
  Company Number: CH-BAXTER-2012BAX026387

PATIENT
  Age: 66 Year
  Sex: Male

DRUGS (5)
  1. ENDOXAN [Suspect]
     Indication: NON-HODGKIN^S LYMPHOMA
     Route: 065
     Dates: start: 20030911
  2. RITUXIMAB [Suspect]
     Indication: NON-HODGKIN^S LYMPHOMA
     Dosage: 8ZYLDEN CHOP
     Route: 065
     Dates: start: 20030911
  3. PREDNISOLONE [Suspect]
     Indication: NON-HODGKIN^S LYMPHOMA
     Dosage: 6ZYLDEN CHOP
     Route: 065
     Dates: start: 20030911
  4. VINCRISTINE [Suspect]
     Indication: NON-HODGKIN^S LYMPHOMA
     Dosage: 6ZYLDEN CHOP
     Route: 065
     Dates: start: 20030911
  5. DOXORUBICIN [Suspect]
     Indication: NON-HODGKIN^S LYMPHOMA
     Dosage: 6ZLLDEN CHOP
     Route: 065
     Dates: start: 20030911

REACTIONS (2)
  - Pancreatic neoplasm [Unknown]
  - Acute myeloid leukaemia [Unknown]
